FAERS Safety Report 6300445-9 (Version None)
Quarter: 2009Q3

REPORT INFORMATION
  Report Type: 
  Country: None (occurrence: None)
  Receive Date: 20090806
  Receipt Date: 20081022
  Transmission Date: 20100115
  Serious: No
  Sender: FDA-Public Use
  Company Number: US-ABBOTT-08P-163-0483304-00

PATIENT
  Sex: Female
  Weight: 60.382 kg

DRUGS (15)
  1. DEPAKOTE ER [Suspect]
     Indication: DEPRESSION
     Dates: start: 20010101
  2. DEPAKOTE ER [Suspect]
     Indication: POST-TRAUMATIC STRESS DISORDER
     Dosage: 1000-1500 MILLIGRAM
     Dates: start: 20080101
  3. DEPAKOTE ER [Suspect]
     Indication: BIPOLAR DISORDER
     Dates: start: 20080301, end: 20080301
  4. PARACETAMOL [Suspect]
     Indication: PAIN
     Route: 048
     Dates: start: 20020101, end: 20020101
  5. LEVOTHYROXINE SODIUM [Concomitant]
     Indication: AUTOIMMUNE THYROIDITIS
     Route: 048
     Dates: start: 19860101
  6. LEVOTHYROXINE SODIUM [Concomitant]
     Indication: HYPOTHYROIDISM
  7. BUPROPION HCL [Concomitant]
     Indication: DRUG USE FOR UNKNOWN INDICATION
     Route: 048
  8. MESALAZINE [Concomitant]
     Indication: DIARRHOEA
     Route: 048
  9. LORATADINE [Concomitant]
     Indication: ANTIALLERGIC THERAPY
     Route: 048
  10. SALBUTAMOL [Concomitant]
     Indication: DRUG USE FOR UNKNOWN INDICATION
     Route: 055
  11. CLONAZEPAM [Concomitant]
     Indication: DRUG USE FOR UNKNOWN INDICATION
  12. BUSPIRONE HCL [Concomitant]
     Indication: ANXIETY
     Route: 048
  13. GLYCERYL TRINITRATE [Concomitant]
     Indication: CHEST PAIN
     Route: 048
  14. EPINEPHRINE [Concomitant]
     Indication: HYPERSENSITIVITY
     Route: 048
  15. OMEPRAZOLE SODIUM [Concomitant]
     Indication: GASTROOESOPHAGEAL REFLUX DISEASE
     Route: 048

REACTIONS (3)
  - HEPATIC ENZYME INCREASED [None]
  - HEPATOMEGALY [None]
  - SJOGREN'S SYNDROME [None]
